FAERS Safety Report 6666385-0 (Version None)
Quarter: 2010Q2

REPORT INFORMATION
  Report Type: 
  Country: None (occurrence: None)
  Receive Date: 20100402
  Receipt Date: 20100325
  Transmission Date: 20101027
  Serious: Yes (Other)
  Sender: FDA-Public Use
  Company Number: FR-ABBOTT-10P-056-0634818-00

PATIENT
  Sex: Male

DRUGS (10)
  1. KALETRA [Suspect]
     Indication: HIV INFECTION
     Route: 048
     Dates: start: 20080613, end: 20091215
  2. COMBIVIR [Interacting]
     Indication: HIV INFECTION
     Dosage: 150 MG/300 MG, 2 IN 1 DAY
     Route: 048
     Dates: start: 20080613, end: 20091215
  3. PREVISCAN [Interacting]
     Indication: DRUG USE FOR UNKNOWN INDICATION
     Route: 048
     Dates: start: 20091115
  4. PREVISCAN [Interacting]
     Dates: end: 20091119
  5. PREVISCAN [Interacting]
     Dates: start: 20100101
  6. SINTROM [Interacting]
     Indication: DRUG USE FOR UNKNOWN INDICATION
     Route: 048
     Dates: start: 20091120, end: 20091215
  7. COUMADIN [Interacting]
     Indication: DRUG USE FOR UNKNOWN INDICATION
     Route: 048
     Dates: start: 20091216, end: 20091222
  8. BACTRIM [Concomitant]
     Indication: DRUG USE FOR UNKNOWN INDICATION
  9. RIVOTRIL [Concomitant]
     Indication: DRUG USE FOR UNKNOWN INDICATION
  10. ARIXTRA [Concomitant]
     Indication: COAGULOPATHY
     Dates: start: 20091101, end: 20100118

REACTIONS (3)
  - DRUG INEFFECTIVE [None]
  - DRUG INTERACTION [None]
  - INTERNATIONAL NORMALISED RATIO DECREASED [None]
